FAERS Safety Report 13715600 (Version 1)
Quarter: 2017Q3

REPORT INFORMATION
  Report Type: Report from Study
  Country: None (occurrence: BR)
  Receive Date: 20170705
  Receipt Date: 20170705
  Transmission Date: 20171127
  Serious: Yes (Disabling)
  Sender: FDA-Public Use
  Company Number: BR-ABBVIE-17K-020-2024293-00

PATIENT
  Age: 60 Year
  Sex: Male
  Weight: 88 kg

DRUGS (3)
  1. HUMIRA [Suspect]
     Active Substance: ADALIMUMAB
     Route: 058
  2. AAS [Concomitant]
     Active Substance: ASPIRIN
     Indication: PRODUCT USED FOR UNKNOWN INDICATION
  3. HUMIRA [Suspect]
     Active Substance: ADALIMUMAB
     Indication: COLITIS ULCERATIVE
     Dosage: WEEK 0
     Route: 058
     Dates: start: 20160211, end: 20160211

REACTIONS (7)
  - Dysuria [Recovering/Resolving]
  - Gait inability [Recovered/Resolved]
  - Bone pain [Recovered/Resolved]
  - Arthritis [Recovering/Resolving]
  - Paraesthesia [Not Recovered/Not Resolved]
  - Balanoposthitis [Recovering/Resolving]
  - Genital discomfort [Recovered/Resolved]

NARRATIVE: CASE EVENT DATE: 201612
